FAERS Safety Report 18368504 (Version 4)
Quarter: 2021Q1

REPORT INFORMATION
  Report Type: Report from Study
  Country: None (occurrence: US)
  Receive Date: 20201010
  Receipt Date: 20210228
  Transmission Date: 20210419
  Serious: Yes (Hospitalization)
  Sender: FDA-Public Use
  Company Number: US-ABBVIE-20K-163-3595366-00

PATIENT
  Age: 53 Year
  Sex: Female
  Weight: 86.71 kg

DRUGS (1)
  1. HUMIRA [Suspect]
     Active Substance: ADALIMUMAB
     Indication: CROHN^S DISEASE
     Route: 058
     Dates: start: 20200915, end: 20200929

REACTIONS (11)
  - Hepatic enzyme increased [Not Recovered/Not Resolved]
  - Large intestinal ulcer [Unknown]
  - Pyrexia [Recovered/Resolved]
  - Diarrhoea [Not Recovered/Not Resolved]
  - COVID-19 [Recovered/Resolved]
  - Infection [Unknown]
  - Colitis [Not Recovered/Not Resolved]
  - C-reactive protein increased [Recovering/Resolving]
  - Nausea [Recovered/Resolved]
  - Blood sodium decreased [Not Recovered/Not Resolved]
  - Rash [Recovering/Resolving]

NARRATIVE: CASE EVENT DATE: 2020
